FAERS Safety Report 9104595 (Version 4)
Quarter: 2013Q2

REPORT INFORMATION
  Report Type: Spontaneous
  Country: JP (occurrence: JP)
  Receive Date: 20130219
  Receipt Date: 20130522
  Transmission Date: 20140414
  Serious: Yes (Hospitalization, Disabling)
  Sender: FDA-Public Use
  Company Number: JP-B.I. PHARMACEUTICALS,INC./RIDGEFIELD-2013-BI-03310NB

PATIENT
  Age: 89 Year
  Sex: Female
  Weight: 42 kg

DRUGS (5)
  1. PRAZAXA [Suspect]
     Indication: ATRIAL FIBRILLATION
     Dosage: 220 MG
     Route: 048
     Dates: end: 20130125
  2. BAYASPIRIN [Suspect]
     Dosage: 100 MG
     Route: 048
  3. ZANTAC [Concomitant]
     Dosage: 150 MG
     Route: 048
  4. SELBEX [Concomitant]
     Dosage: 100 MG
     Route: 048
  5. ADALAT [Concomitant]
     Indication: HYPERTENSION
     Dosage: 10 MG
     Route: 048

REACTIONS (5)
  - Cardiac failure congestive [Recovered/Resolved]
  - Infection [Recovered/Resolved]
  - Contusion [Recovered/Resolved]
  - Haematoma [Recovered/Resolved with Sequelae]
  - Arrhythmia [Not Recovered/Not Resolved]
